FAERS Safety Report 4603826-4 (Version None)
Quarter: 2005Q1

REPORT INFORMATION
  Report Type: 
  Country: None (occurrence: None)
  Receive Date: 20050308
  Receipt Date: 20050228
  Transmission Date: 20050727
  Serious: Yes (Other)
  Sender: FDA-Public Use
  Company Number: 200510666BCC

PATIENT
  Sex: Female
  Weight: 38.5557 kg

DRUGS (9)
  1. MILK OF MAGNESIA TAB [Suspect]
     Indication: CONSTIPATION
     Dosage: 1244 MG, QD, ORAL
     Route: 048
     Dates: start: 19700101
  2. CALAN [Concomitant]
  3. LOPRESSOR [Concomitant]
  4. BUTISOL [Concomitant]
  5. EXTRA STRENGTH TYLENOL [Concomitant]
  6. GOOD NEIGHBOR ASPIRIN [Concomitant]
  7. REFRESH [Concomitant]
  8. VALIUM [Concomitant]
  9. ACTONEL [Concomitant]

REACTIONS (2)
  - ABDOMINAL DISTENSION [None]
  - GASTRIC DISORDER [None]
